FAERS Safety Report 25112011 (Version 1)
Quarter: 2025Q1

REPORT INFORMATION
  Report Type: Spontaneous
  Country: US (occurrence: None)
  Receive Date: 20250321
  Receipt Date: 20250321
  Transmission Date: 20250409
  Serious: Yes (Hospitalization)
  Sender: FDA-CTU
  Company Number: None

PATIENT
  Age: 71 Year
  Sex: Male
  Weight: 132 kg

DRUGS (16)
  1. DAPTOMYCIN [Suspect]
     Active Substance: DAPTOMYCIN
     Indication: Enterococcal bacteraemia
     Dosage: FREQUENCY : DAILY;?
     Route: 042
     Dates: start: 20250301, end: 20250311
  2. Aspirin 81mg tablet [Concomitant]
  3. ATORVASTATIN [Concomitant]
     Active Substance: ATORVASTATIN
  4. Bismuth subsalicylate 262mg/15mL suspension [Concomitant]
  5. Carvedilol 6.25mg tablet [Concomitant]
  6. diphenoxylate-atropine 2.5-0.025mg/tablet [Concomitant]
  7. Empagliflozin 25mg tablet [Concomitant]
  8. Heparin (porcine) 5,000 unit/mL injection [Concomitant]
  9. Hydromorphone 2mg tablet [Concomitant]
  10. Insulin lispro 100unit/mL injection [Concomitant]
  11. Lactobacillus 10 billion cell capsule [Concomitant]
  12. Miconazole 2% powder [Concomitant]
  13. Multivitamin with folic acid 400mcg tablet [Concomitant]
  14. naloxone 4mg/0.1mL nasal spray [Concomitant]
  15. Sodium bicarbonate 650mg tablet [Concomitant]
  16. Tamsulosin 0.4mg 24-hour capsule [Concomitant]

REACTIONS (3)
  - Asthenia [None]
  - Dyspnoea [None]
  - Rhabdomyolysis [None]

NARRATIVE: CASE EVENT DATE: 20250311
